FAERS Safety Report 7322019-3 (Version None)
Quarter: 2011Q1

REPORT INFORMATION
  Report Type: 
  Country: None (occurrence: None)
  Receive Date: 20110228
  Receipt Date: 20110222
  Transmission Date: 20110831
  Serious: No
  Sender: FDA-Public Use
  Company Number: US-PFIZER INC-2011038949

PATIENT
  Sex: Female
  Weight: 7 kg

DRUGS (1)
  1. GENOTROPIN [Suspect]
     Indication: HYPOPITUITARISM
     Dosage: 0.3 MG, 1X/DAY, 6X/WEEK
     Route: 058
     Dates: start: 20101231

REACTIONS (2)
  - HAEMOGLOBIN DECREASED [None]
  - BLOOD IRON DECREASED [None]
